FAERS Safety Report 8386610-8 (Version None)
Quarter: 2012Q2

REPORT INFORMATION
  Report Type: 
  Country: None (occurrence: None)
  Receive Date: 20120525
  Receipt Date: 20120301
  Transmission Date: 20120825
  Serious: No
  Sender: FDA-Public Use
  Company Number: US-GLAXOSMITHKLINE-A0968223A

PATIENT
  Age: 55 Year
  Sex: Female

DRUGS (7)
  1. VERAMYST [Suspect]
     Indication: RHINORRHOEA
     Dosage: 1SPR PER DAY
     Route: 045
     Dates: start: 20110301
  2. CALCIUM + D [Concomitant]
  3. VITAMIN B-12 [Concomitant]
  4. PHENOBARBITAL TAB [Suspect]
     Dosage: 97.2MG PER DAY
     Dates: start: 19970101
  5. FLUOXETINE [Concomitant]
  6. TOPIRAMATE [Suspect]
     Dosage: 200MG TWICE PER DAY
     Dates: start: 19970101
  7. HYDROXYZINE [Concomitant]

REACTIONS (4)
  - YAWNING [None]
  - INFLUENZA LIKE ILLNESS [None]
  - ASTHENIA [None]
  - FATIGUE [None]
